FAERS Safety Report 15465522 (Version 1)
Quarter: 2018Q4

REPORT INFORMATION
  Report Type: Spontaneous
  Country: JP (occurrence: JP)
  Receive Date: 20181004
  Receipt Date: 20181004
  Transmission Date: 20190204
  Serious: Yes (Hospitalization, Other)
  Sender: FDA-Public Use
  Company Number: JP-PFIZER INC-2018179066

PATIENT
  Age: 7 Decade

DRUGS (4)
  1. XALKORI [Suspect]
     Active Substance: CRIZOTINIB
     Dosage: 250 MG, ALTERNATE DAY
     Route: 048
  2. XALKORI [Suspect]
     Active Substance: CRIZOTINIB
     Dosage: 400 MG, DAILY
     Route: 048
  3. XALKORI [Suspect]
     Active Substance: CRIZOTINIB
     Indication: LUNG NEOPLASM MALIGNANT
     Dosage: 500 MG, DAILY
     Route: 048
     Dates: start: 201803
  4. XALKORI [Suspect]
     Active Substance: CRIZOTINIB
     Dosage: 400 MG, ALTERNATE DAY
     Route: 048

REACTIONS (4)
  - Dysgeusia [Recovering/Resolving]
  - Hepatic function abnormal [Recovering/Resolving]
  - Renal impairment [Recovering/Resolving]
  - Visual impairment [Recovering/Resolving]

NARRATIVE: CASE EVENT DATE: 201804
